FAERS Safety Report 9020558 (Version 1)
Quarter: 2013Q1

REPORT INFORMATION
  Report Type: Spontaneous
  Country: US (occurrence: US)
  Receive Date: 20130119
  Receipt Date: 20130119
  Transmission Date: 20140127
  Serious: No
  Sender: FDA-Public Use
  Company Number: US-ALLERGAN-1207465US

PATIENT
  Age: 39 Year
  Sex: Female

DRUGS (1)
  1. BOTOX COSMETIC [Suspect]
     Indication: SKIN WRINKLING
     Dosage: 28 UNITS, SINGLE
     Route: 030
     Dates: start: 20120517, end: 20120517

REACTIONS (17)
  - Local swelling [Unknown]
  - Headache [Unknown]
  - Nausea [Unknown]
  - Pyrexia [Recovering/Resolving]
  - Paraesthesia [Unknown]
  - Hypoaesthesia [Unknown]
  - Ear pain [Unknown]
  - Rash erythematous [Unknown]
  - Chills [Unknown]
  - Chills [Unknown]
  - Influenza like illness [Unknown]
  - Rash [Unknown]
  - Pruritus [Unknown]
  - Joint swelling [Unknown]
  - Arthralgia [Unknown]
  - Muscular weakness [Unknown]
  - Back pain [Unknown]
